FAERS Safety Report 10675842 (Version 9)
Quarter: 2025Q1

REPORT INFORMATION
  Report Type: Report from Study
  Country: CA (occurrence: CA)
  Receive Date: 20141225
  Receipt Date: 20250319
  Transmission Date: 20250409
  Serious: Yes (Other)
  Sender: ROCHE
  Company Number: CA-ROCHE-1514222

PATIENT
  Age: 64 Year
  Sex: Female

DRUGS (9)
  1. XOLAIR [Suspect]
     Active Substance: OMALIZUMAB
     Indication: Asthma
     Route: 058
     Dates: start: 20120127
  2. XOLAIR [Suspect]
     Active Substance: OMALIZUMAB
     Route: 058
  3. QVAR [Concomitant]
     Active Substance: BECLOMETHASONE DIPROPIONATE
  4. PREDNISONE [Concomitant]
     Active Substance: PREDNISONE
  5. FLUTICASONE FUROATE [Concomitant]
     Active Substance: FLUTICASONE FUROATE
  6. SINGULAIR [Concomitant]
     Active Substance: MONTELUKAST SODIUM
  7. OMEPRAZOLE [Concomitant]
     Active Substance: OMEPRAZOLE
  8. SYMBICORT [Concomitant]
     Active Substance: BUDESONIDE\FORMOTEROL FUMARATE DIHYDRATE
  9. VENTOLIN [Concomitant]
     Active Substance: ALBUTEROL SULFATE

REACTIONS (12)
  - Pneumonia [Unknown]
  - Product physical consistency issue [Unknown]
  - Middle insomnia [Unknown]
  - Seasonal allergy [Unknown]
  - Obstructive airways disorder [Unknown]
  - Discomfort [Unknown]
  - Nasopharyngitis [Unknown]
  - Forced expiratory volume decreased [Recovering/Resolving]
  - Therapeutic response decreased [Unknown]
  - Breath sounds abnormal [Unknown]
  - Forced vital capacity decreased [Unknown]
  - Asthma [Unknown]

NARRATIVE: CASE EVENT DATE: 20180611
